FAERS Safety Report 7297734-0 (Version None)
Quarter: 2011Q1

REPORT INFORMATION
  Report Type: 
  Country: None (occurrence: None)
  Receive Date: 20110214
  Receipt Date: 20110214
  Transmission Date: 20110831
  Serious: Yes (Other)
  Sender: FDA-Public Use
  Company Number: None

PATIENT
  Age: 45 Year
  Sex: Female
  Weight: 72.5755 kg

DRUGS (1)
  1. AMPHETAMINES [Suspect]
     Indication: ATTENTION DEFICIT/HYPERACTIVITY DISORDER
     Dosage: 20 MG TID PO
     Route: 048
     Dates: start: 20110127, end: 20110210

REACTIONS (4)
  - NAUSEA [None]
  - DRUG INEFFECTIVE [None]
  - HEADACHE [None]
  - DISTURBANCE IN ATTENTION [None]
